FAERS Safety Report 5034915-0 (Version None)
Quarter: 2006Q2

REPORT INFORMATION
  Report Type: 
  Country: None (occurrence: None)
  Receive Date: 20060621
  Receipt Date: 20060605
  Transmission Date: 20061013
  Serious: Yes (Other)
  Sender: FDA-Public Use
  Company Number: US183037

PATIENT
  Age: 32 Year
  Sex: Female

DRUGS (1)
  1. ENBREL [Suspect]
     Indication: JUVENILE ARTHRITIS
     Dosage: 0.4 MG /KG 2 IN 1 WEEKS SC
     Route: 058

REACTIONS (2)
  - CROHN'S DISEASE [None]
  - WEIGHT DECREASED [None]
